FAERS Safety Report 5894864-2 (Version None)
Quarter: 2008Q3

REPORT INFORMATION
  Report Type: 
  Country: None (occurrence: None)
  Receive Date: 20080924
  Receipt Date: 20080707
  Transmission Date: 20090109
  Serious: No
  Sender: FDA-Public Use
  Company Number: US-ASTRAZENECA-2008UW13634

PATIENT
  Age: 55 Year
  Sex: Male
  Weight: 56.7 kg

DRUGS (3)
  1. SEROQUEL [Suspect]
     Indication: ADRENAL DISORDER
     Dosage: 300 MG
     Route: 048
     Dates: start: 20070101
  2. SEROQUEL [Suspect]
     Indication: NERVOUS SYSTEM DISORDER
     Dosage: 300 MG
     Route: 048
     Dates: start: 20070101
  3. LEXAPRO [Concomitant]

REACTIONS (3)
  - ANXIETY [None]
  - FEELING ABNORMAL [None]
  - HEART RATE INCREASED [None]
